FAERS Safety Report 17609390 (Version 2)
Quarter: 2020Q2

REPORT INFORMATION
  Report Type: Report from Study
  Country: CA (occurrence: CA)
  Receive Date: 20200401
  Receipt Date: 20200406
  Transmission Date: 20200713
  Serious: Yes (Other)
  Sender: FDA-Public Use
  Company Number: NVSC2020CA088935

PATIENT
  Age: 72 Year
  Sex: Male

DRUGS (1)
  1. COSENTYX [Suspect]
     Active Substance: SECUKINUMAB
     Indication: PRODUCT USED FOR UNKNOWN INDICATION
     Dosage: 3 DF, UNKNOWN
     Route: 065

REACTIONS (11)
  - Bronchitis [Unknown]
  - Pyrexia [Unknown]
  - Arthralgia [Unknown]
  - Incorrect dose administered [Unknown]
  - Arthritis [Unknown]
  - Peripheral swelling [Unknown]
  - Pneumonia [Unknown]
  - Influenza [Unknown]
  - Decreased immune responsiveness [Unknown]
  - Cough [Unknown]
  - Gastroenteritis viral [Unknown]

NARRATIVE: CASE EVENT DATE: 20200102
